FAERS Safety Report 18616991 (Version 1)
Quarter: 2020Q4

REPORT INFORMATION
  Report Type: Spontaneous
  Country: ES (occurrence: ES)
  Receive Date: 20201215
  Receipt Date: 20201215
  Transmission Date: 20210114
  Serious: Yes (Other)
  Sender: FDA-Public Use
  Company Number: ES-ACCORD-210863

PATIENT
  Age: 76 Year
  Sex: Male

DRUGS (4)
  1. DAPTOMYCIN ACCORD PHARMA [Suspect]
     Active Substance: DAPTOMYCIN
     Indication: SUBCUTANEOUS ABSCESS
     Dosage: 900 MILLIGRAM (1.8 VIAL) AT 21 HOURS FOR 7 DAYS, STRENGTH: 500 MG
     Route: 042
     Dates: start: 20201118, end: 20201125
  2. LEVOFLOXACIN/LEVOFLOXACIN MESYLATE [Suspect]
     Active Substance: LEVOFLOXACIN
     Indication: PYREXIA
     Route: 048
     Dates: start: 20201111, end: 20201117
  3. PIPERACILLIN/TAZOBACTAM [Suspect]
     Active Substance: PIPERACILLIN SODIUM\TAZOBACTAM SODIUM
     Indication: SUBCUTANEOUS ABSCESS
     Dosage: 4 G CADA 6 H,
     Route: 042
     Dates: start: 20201118, end: 20201125
  4. AMOXICILLIN/CLAVULANIC ACID [Suspect]
     Active Substance: AMOXICILLIN\CLAVULANIC ACID
     Indication: PYREXIA
     Dosage: STRENGTH: 875 MG / 125 MG
     Route: 048
     Dates: start: 20201111, end: 20201117

REACTIONS (2)
  - Off label use [Unknown]
  - Hepatitis [Recovering/Resolving]

NARRATIVE: CASE EVENT DATE: 20201120
